FAERS Safety Report 10255118 (Version 2)
Quarter: 2014Q3

REPORT INFORMATION
  Report Type: Spontaneous
  Country: US (occurrence: US)
  Receive Date: 20140624
  Receipt Date: 20140702
  Transmission Date: 20150326
  Serious: Yes (Disabling)
  Sender: FDA-Public Use
  Company Number: US-009507513-1406USA010831

PATIENT
  Age: 71 Year
  Sex: Female

DRUGS (3)
  1. REBETOL [Suspect]
     Active Substance: RIBAVIRIN
     Dosage: UNK
     Route: 048
     Dates: start: 20140509, end: 20140616
  2. PEGINTRON [Suspect]
     Active Substance: PEGINTERFERON ALFA-2B
     Indication: HEPATITIS C
     Dosage: UNK, THERAPY ROUTE: INJECTION
     Dates: start: 20140509, end: 20140616
  3. SOVALDI [Suspect]
     Active Substance: SOFOSBUVIR
     Dosage: UNK
     Dates: start: 20140509, end: 20140616

REACTIONS (6)
  - Mobility decreased [Recovered/Resolved]
  - Erythema [Unknown]
  - Arthritis [Unknown]
  - Walking aid user [Recovered/Resolved]
  - Peripheral swelling [Recovered/Resolved]
  - Tenderness [Unknown]

NARRATIVE: CASE EVENT DATE: 201406
